FAERS Safety Report 8267589-6 (Version None)
Quarter: 2012Q2

REPORT INFORMATION
  Report Type: 
  Country: None (occurrence: None)
  Receive Date: 20120409
  Receipt Date: 20120327
  Transmission Date: 20120825
  Serious: Yes (Death)
  Sender: FDA-Public Use
  Company Number: FR-ELI_LILLY_AND_COMPANY-FR201110001854

PATIENT
  Sex: Male

DRUGS (3)
  1. ZYPREXA [Suspect]
     Dosage: 10MG, QD
     Route: 048
  2. ZYPREXA [Suspect]
     Indication: SCHIZOPHRENIA
     Dosage: 7.5MG, QD
     Route: 048
     Dates: start: 20110430
  3. ZYPREXA [Suspect]
     Dosage: 20MG, QD
     Route: 048
     Dates: end: 20110525

REACTIONS (7)
  - MUSCULOSKELETAL PAIN [None]
  - NECK PAIN [None]
  - MALAISE [None]
  - PULMONARY EMBOLISM [None]
  - PULMONARY OEDEMA [None]
  - MULTI-ORGAN DISORDER [None]
  - LOSS OF CONSCIOUSNESS [None]
